FAERS Safety Report 18933551 (Version 1)
Quarter: 2021Q1

REPORT INFORMATION
  Report Type: Spontaneous
  Country: US (occurrence: US)
  Receive Date: 20210224
  Receipt Date: 20210224
  Transmission Date: 20210420
  Serious: Yes (Other)
  Sender: FDA-Public Use
  Company Number: US-BAYER-2021-078578

PATIENT
  Age: 76 Year
  Sex: Male

DRUGS (2)
  1. CLARITIN LIQUI?GELS [Suspect]
     Active Substance: LORATADINE
     Indication: NASOPHARYNGITIS
  2. CLARITIN LIQUI?GELS [Suspect]
     Active Substance: LORATADINE
     Indication: ALLERGIC RESPIRATORY SYMPTOM
     Dosage: 1 DF
     Route: 048
     Dates: start: 20210221

REACTIONS (4)
  - Product size issue [Unknown]
  - Foreign body in throat [Recovered/Resolved]
  - Foreign body in throat [Unknown]
  - Product commingling [Unknown]

NARRATIVE: CASE EVENT DATE: 20210221
